FAERS Safety Report 20497314 (Version 1)
Quarter: 2022Q1

REPORT INFORMATION
  Report Type: Spontaneous
  Country: US (occurrence: US)
  Receive Date: 20220221
  Receipt Date: 20220221
  Transmission Date: 20220424
  Serious: Yes (Hospitalization)
  Sender: FDA-Public Use
  Company Number: US-TEVA-2022-US-2008409

PATIENT
  Age: 57 Year
  Sex: Female

DRUGS (2)
  1. LORAZEPAM [Suspect]
     Active Substance: LORAZEPAM
     Indication: Post-traumatic stress disorder
     Dosage: 3 MILLIGRAM DAILY;
     Route: 065
     Dates: start: 2014
  2. LORAZEPAM [Suspect]
     Active Substance: LORAZEPAM
     Indication: Anxiety
     Route: 065

REACTIONS (9)
  - Hospitalisation [Recovered/Resolved]
  - Allergic reaction to excipient [Unknown]
  - Dyspnoea [Recovered/Resolved]
  - Feeling abnormal [Recovered/Resolved]
  - Concussion [Unknown]
  - Road traffic accident [Recovered/Resolved]
  - Mobility decreased [Recovered/Resolved]
  - Adverse event [Unknown]
  - Product dispensing error [Unknown]
